FAERS Safety Report 24285897 (Version 1)
Quarter: 2024Q3

REPORT INFORMATION
  Report Type: Spontaneous
  Country: HU (occurrence: HU)
  Receive Date: 20240905
  Receipt Date: 20240905
  Transmission Date: 20241016
  Serious: Yes (Death, Other)
  Sender: NOVARTIS
  Company Number: HU-002147023-NVSC2022HU304839

PATIENT

DRUGS (2)
  1. LAPATINIB [Suspect]
     Active Substance: LAPATINIB
     Indication: HER2 positive breast cancer
     Dosage: UNK
     Route: 065
     Dates: start: 20181115
  2. XELODA [Concomitant]
     Active Substance: CAPECITABINE
     Indication: HER2 positive breast cancer
     Dosage: UNK
     Route: 065
     Dates: start: 20181115

REACTIONS (6)
  - Coronavirus infection [Fatal]
  - Metastases to central nervous system [Unknown]
  - Hemiparesis [Unknown]
  - Breast cancer recurrent [Recovered/Resolved]
  - HER2 positive breast cancer [Recovered/Resolved]
  - Malignant neoplasm progression [Recovered/Resolved]

NARRATIVE: CASE EVENT DATE: 20190918
